FAERS Safety Report 7201262-8 (Version None)
Quarter: 2010Q4

REPORT INFORMATION
  Report Type: 
  Country: None (occurrence: None)
  Receive Date: 20101227
  Receipt Date: 20101227
  Transmission Date: 20110411
  Serious: No
  Sender: FDA-Public Use
  Company Number: None

PATIENT
  Age: 72 Year
  Sex: Male
  Weight: 108.8633 kg

DRUGS (1)
  1. TERBINAFINE HCL [Suspect]
     Indication: RASH
     Dosage: ONE TABLET DAILY PO
     Route: 048
     Dates: start: 20100109, end: 20100116

REACTIONS (6)
  - EXTRAVASATION [None]
  - OEDEMA PERIPHERAL [None]
  - PENIS DISORDER [None]
  - RASH [None]
  - SCROTAL SWELLING [None]
  - SKIN EXFOLIATION [None]
